FAERS Safety Report 19362292 (Version 1)
Quarter: 2021Q2

REPORT INFORMATION
  Report Type: Spontaneous
  Country: US (occurrence: US)
  Receive Date: 20210603
  Receipt Date: 20210603
  Transmission Date: 20210717
  Serious: No
  Sender: FDA-Public Use
  Company Number: US-ASTRAZENECA-2021A438358

PATIENT
  Sex: Male
  Weight: 102.1 kg

DRUGS (1)
  1. FARXIGA [Suspect]
     Active Substance: DAPAGLIFLOZIN PROPANEDIOL
     Indication: CARDIAC FAILURE
     Route: 048
     Dates: start: 20210427

REACTIONS (1)
  - Heart rate abnormal [Not Recovered/Not Resolved]
